FAERS Safety Report 5374173-0 (Version None)
Quarter: 2007Q2

REPORT INFORMATION
  Report Type: 
  Country: None (occurrence: None)
  Receive Date: 20070627
  Receipt Date: 20061106
  Transmission Date: 20071010
  Serious: Yes (Other)
  Sender: FDA-Public Use
  Company Number: 470311

PATIENT
  Age: 70 Year
  Sex: Female
  Weight: 47.6 kg

DRUGS (1)
  1. XELODA [Suspect]
     Indication: COLORECTAL CANCER
     Dosage: 2000 MG 2 PER DAY

REACTIONS (1)
  - VOMITING [None]
